FAERS Safety Report 22050266 (Version 1)
Quarter: 2023Q1

REPORT INFORMATION
  Report Type: Spontaneous
  Country: AE (occurrence: AE)
  Receive Date: 20230301
  Receipt Date: 20230301
  Transmission Date: 20230417
  Serious: Yes (Death, Other)
  Sender: FDA-Public Use
  Company Number: AE-002147023-NVSC2023AE011299

PATIENT
  Age: 34 Year
  Sex: Male

DRUGS (1)
  1. GILENYA [Suspect]
     Active Substance: FINGOLIMOD HYDROCHLORIDE
     Indication: Multiple sclerosis
     Dosage: 0.5 MG, QD
     Route: 048
     Dates: start: 20130501, end: 20230110

REACTIONS (23)
  - Intracranial pressure increased [Fatal]
  - Brain oedema [Fatal]
  - Brain herniation [Fatal]
  - Cryptococcosis [Unknown]
  - Meningitis [Unknown]
  - Diplopia [Unknown]
  - CSF white blood cell count increased [Unknown]
  - Kernig^s sign [Unknown]
  - Brudzinski^s sign [Unknown]
  - CSF glucose decreased [Unknown]
  - Blindness unilateral [Unknown]
  - Confusional state [Unknown]
  - Meningitis cryptococcal [Unknown]
  - Muscle spasticity [Unknown]
  - Blindness [Unknown]
  - Coma [Unknown]
  - Dysphagia [Unknown]
  - Headache [Unknown]
  - Meningism [Unknown]
  - Pyrexia [Unknown]
  - Deafness [Unknown]
  - Papilloedema [Unknown]
  - Musculoskeletal stiffness [Unknown]

NARRATIVE: CASE EVENT DATE: 20230107
